FAERS Safety Report 5278912-9 (Version None)
Quarter: 2007Q1

REPORT INFORMATION
  Report Type: 
  Country: None (occurrence: None)
  Receive Date: 20061208
  Receipt Date: 20050914
  Transmission Date: 20070707
  Serious: No
  Sender: FDA-Public Use
  Company Number: 2005UW11929

PATIENT
  Age: 61 Year
  Sex: Male

DRUGS (5)
  1. CRESTOR [Suspect]
     Dosage: 10 MG PO
     Route: 048
     Dates: start: 20040101, end: 20050801
  2. ATORVASTATIN CALCIUM [Suspect]
  3. ANGIOTENSIN RECEPTOR BLOCKER [Concomitant]
  4. METHOTREXATE [Concomitant]
  5. NON STEROIDAL ANTI INFLAMMATORY [Concomitant]

REACTIONS (1)
  - MYALGIA [None]
